FAERS Safety Report 8834725 (Version 1)
Quarter: 2012Q4

REPORT INFORMATION
  Report Type: Report from Study
  Country: US (occurrence: US)
  Receive Date: 20121010
  Receipt Date: 20121010
  Transmission Date: 20130627
  Serious: Yes (Hospitalization, Other)
  Sender: FDA-Public Use
  Company Number: US-ROCHE-1141611

PATIENT
  Age: 54 Year
  Sex: Female

DRUGS (6)
  1. HERCEPTIN [Suspect]
     Indication: BREAST CANCER
     Dosage: loading dose
     Route: 042
     Dates: start: 20101227
  2. HERCEPTIN [Suspect]
     Dosage: maintainance dose
     Route: 042
  3. CARBOPLATIN [Suspect]
     Indication: BREAST CANCER
     Dosage: 6 auc
     Route: 042
     Dates: start: 20101227
  4. DOCETAXEL [Suspect]
     Indication: BREAST CANCER
     Route: 042
     Dates: start: 20101227
  5. LAPATINIB [Suspect]
     Indication: BREAST CANCER
     Route: 048
     Dates: start: 20101227
  6. GRANULOCYTE COLONY STIMULATING FACTOR NOS [Concomitant]

REACTIONS (4)
  - Pyrexia [Not Recovered/Not Resolved]
  - Vascular access complication [Unknown]
  - Enterocolitis infectious [Recovered/Resolved]
  - Thrombosis [Unknown]
